FAERS Safety Report 13260449 (Version 1)
Quarter: 2017Q1

REPORT INFORMATION
  Report Type: Spontaneous
  Country: IE (occurrence: IE)
  Receive Date: 20170222
  Receipt Date: 20170222
  Transmission Date: 20170428
  Serious: Yes (Hospitalization, Other)
  Sender: FDA-Public Use
  Company Number: IE-ABBVIE-17P-229-1883841-00

PATIENT
  Age: 52 Year
  Sex: Male

DRUGS (8)
  1. ROSUVASTATIN ACTAVIS [Suspect]
     Active Substance: ROSUVASTATIN
     Indication: HYPERCHOLESTEROLAEMIA
     Dosage: THERAPY START DATE PREDATES JUN/2015
     Route: 048
     Dates: end: 20151005
  2. PRIADEL [Concomitant]
     Active Substance: LITHIUM CARBONATE
     Indication: PRODUCT USED FOR UNKNOWN INDICATION
     Dates: start: 201507, end: 20151005
  3. PERINDOPRIL [Suspect]
     Active Substance: PERINDOPRIL
     Indication: HYPERTENSION
     Route: 048
     Dates: start: 201507, end: 20151005
  4. NU-SEALS [Concomitant]
     Indication: PRODUCT USED FOR UNKNOWN INDICATION
  5. LIPANTIL SUPRA [Suspect]
     Active Substance: FENOFIBRATE
     Indication: TYPE 2 DIABETES MELLITUS
  6. LIPANTIL SUPRA [Suspect]
     Active Substance: FENOFIBRATE
     Indication: HYPERTENSION
  7. METFORMIN BLUEFISH [Suspect]
     Active Substance: METFORMIN HYDROCHLORIDE
     Indication: TYPE 2 DIABETES MELLITUS
     Route: 048
     Dates: start: 201507, end: 20151005
  8. LIPANTIL SUPRA [Suspect]
     Active Substance: FENOFIBRATE
     Indication: HYPERCHOLESTEROLAEMIA
     Dosage: DAILY DOSE AND FREQUENCY UNKNOWN
     Route: 048
     Dates: start: 20150812, end: 20151005

REACTIONS (1)
  - Tubulointerstitial nephritis [Recovering/Resolving]

NARRATIVE: CASE EVENT DATE: 201510
